FAERS Safety Report 4439796-1 (Version None)
Quarter: 2004Q3

REPORT INFORMATION
  Report Type: 
  Country: None (occurrence: None)
  Receive Date: 20040830
  Receipt Date: 20040816
  Transmission Date: 20050211
  Serious: Yes (Hospitalization)
  Sender: FDA-Public Use
  Company Number: 2004-BP-07092NB

PATIENT
  Age: 70 Year
  Sex: Male

DRUGS (2)
  1. MICARDIS [Suspect]
     Dosage: 40 MG (NR) PO
     Route: 048
     Dates: start: 20040626, end: 20040705
  2. OMEPRAZOLE (OMEPRAZOLE) (TA) [Suspect]
     Dosage: PO
     Route: 048
     Dates: start: 20040628, end: 20040705

REACTIONS (1)
  - THROMBOCYTOPENIA [None]
